FAERS Safety Report 12419412 (Version 1)
Quarter: 2016Q2

REPORT INFORMATION
  Report Type: Spontaneous
  Country: US (occurrence: None)
  Receive Date: 20160527
  Receipt Date: 20160527
  Transmission Date: 20160815
  Serious: No
  Sender: FDA-Public Use
  Company Number: None

PATIENT
  Age: 19 Year
  Sex: Female
  Weight: 68.04 kg

DRUGS (1)
  1. BUPROPION HCL [Suspect]
     Active Substance: BUPROPION HYDROCHLORIDE
     Indication: DEPRESSION
     Route: 048
     Dates: start: 20160418, end: 20160513

REACTIONS (6)
  - Drug ineffective [None]
  - Dyskinesia [None]
  - Product substitution issue [None]
  - Anxiety [None]
  - Panic attack [None]
  - Muscle twitching [None]

NARRATIVE: CASE EVENT DATE: 20160418
